FAERS Safety Report 9476846 (Version 1)
Quarter: 2013Q3

REPORT INFORMATION
  Report Type: Spontaneous
  Country: US (occurrence: US)
  Receive Date: 20130826
  Receipt Date: 20130826
  Transmission Date: 20140515
  Serious: No
  Sender: FDA-Public Use
  Company Number: US-TARO-2013P1010845

PATIENT
  Age: 71 Year
  Sex: Female
  Weight: 68.04 kg

DRUGS (4)
  1. CLOBETASOL PROPIONATE CREAM [Suspect]
     Route: 061
     Dates: start: 2012
  2. CLOBETASOL PROPIONATE CREAM [Suspect]
     Route: 061
     Dates: start: 20130426, end: 20130529
  3. HYZAAR [Concomitant]
  4. SYNTHROID [Concomitant]

REACTIONS (5)
  - Herpes zoster [Not Recovered/Not Resolved]
  - Acne [Not Recovered/Not Resolved]
  - Drug administered at inappropriate site [Recovered/Resolved]
  - Drug ineffective for unapproved indication [Not Recovered/Not Resolved]
  - Hair disorder [Unknown]
